FAERS Safety Report 18603108 (Version 1)
Quarter: 2020Q4

REPORT INFORMATION
  Report Type: Spontaneous
  Country: JP (occurrence: JP)
  Receive Date: 20201210
  Receipt Date: 20201210
  Transmission Date: 20210114
  Serious: Yes (Other)
  Sender: FDA-Public Use
  Company Number: JP-TAKEDA-2020TJP026796

PATIENT

DRUGS (2)
  1. TACROLIMUS MONOHYDRATE [Concomitant]
     Active Substance: TACROLIMUS
     Dosage: UNK
     Route: 065
  2. ENTYVIO [Suspect]
     Active Substance: VEDOLIZUMAB
     Indication: COLITIS ULCERATIVE
     Dosage: UNK
     Route: 050

REACTIONS (1)
  - Abdominal abscess [Unknown]
